FAERS Safety Report 20186655 (Version 8)
Quarter: 2022Q1

REPORT INFORMATION
  Report Type: Spontaneous
  Country: CZ (occurrence: CZ)
  Receive Date: 20211215
  Receipt Date: 20220321
  Transmission Date: 20220423
  Serious: Yes (Hospitalization, Disabling, Other)
  Sender: FDA-Public Use
  Company Number: CZ-MYLANLABS-2021M1079815

PATIENT
  Age: 41 Year
  Sex: Male

DRUGS (16)
  1. TAMSULOSIN [Suspect]
     Active Substance: TAMSULOSIN
     Indication: Renal stone removal
     Dosage: 0.4 MILLIGRAM, QD
  2. TAMSULOSIN [Suspect]
     Active Substance: TAMSULOSIN
     Indication: Ureterolithiasis
     Dosage: 0.4 MILLIGRAM
     Route: 065
  3. TAMSULOSIN [Suspect]
     Active Substance: TAMSULOSIN
     Indication: Painful erection
     Dosage: UNK
  4. TAMSULOSIN [Suspect]
     Active Substance: TAMSULOSIN
     Indication: Nephrolithiasis
  5. AMISULPRIDE [Suspect]
     Active Substance: AMISULPRIDE
     Indication: Schizophrenia
     Dosage: 200 MILLIGRAM, QD
     Route: 065
  6. FELODIPINE [Concomitant]
     Active Substance: FELODIPINE
     Indication: Product used for unknown indication
     Dosage: 5 MILLIGRAM, QD
  7. FELODIPINE [Concomitant]
     Active Substance: FELODIPINE
     Dosage: 5 MILLIGRAM (5 MILLIGRAM, UNK)
     Route: 065
  8. AMISULPRIDE [Concomitant]
     Active Substance: AMISULPRIDE
     Indication: Schizophrenia
     Dosage: 200 MILLIGRAM, QD
  9. DICLOFENAC [Concomitant]
     Active Substance: DICLOFENAC
     Indication: Pain
     Dosage: 50 MILLIGRAM, TID
  10. DICLOFENAC [Concomitant]
     Active Substance: DICLOFENAC
     Dosage: 150 MILLIGRAM, QD, 50 MG, TID (1-1-1)
     Route: 065
  11. DICLOFENAC [Concomitant]
     Active Substance: DICLOFENAC
     Dosage: 50 MILLIGRAM, PRN, (AS NECESSARY)
  12. METAMIZOLE;PITOFENONE [Concomitant]
     Indication: Pain
     Dosage: 30 GTT DROPS, TID
  13. METAMIZOLE;PITOFENONE [Concomitant]
     Dosage: 30-30-30 GTT, THRICE DAILY
     Route: 065
  14. METAMIZOLE;PITOFENONE [Concomitant]
     Dosage: 30 GTT DROPS, PRN, (AS NECESSARY)
  15. METAMIZOLE;PITOFENONE [Concomitant]
     Dosage: UNK
     Route: 065
  16. EPINEPHRINE [Concomitant]
     Active Substance: EPINEPHRINE
     Dosage: UNK
     Route: 065

REACTIONS (3)
  - Priapism [Unknown]
  - Off label use [Unknown]
  - Product use in unapproved indication [Unknown]
